FAERS Safety Report 14514874 (Version 1)
Quarter: 2018Q1

REPORT INFORMATION
  Report Type: Spontaneous
  Country: US (occurrence: US)
  Receive Date: 20180209
  Receipt Date: 20180209
  Transmission Date: 20180509
  Serious: Yes (Other)
  Sender: FDA-Public Use
  Company Number: US-SA-2018SA030740

PATIENT
  Sex: Male

DRUGS (1)
  1. PLAVIX [Suspect]
     Active Substance: CLOPIDOGREL BISULFATE
     Indication: MYOCARDIAL INFARCTION
     Route: 048
     Dates: end: 20180125

REACTIONS (5)
  - Adverse event [Unknown]
  - Atrial fibrillation [Unknown]
  - Stent placement [Unknown]
  - Cerebrovascular accident [Unknown]
  - Leukaemia [Unknown]
